FAERS Safety Report 14283025 (Version 8)
Quarter: 2019Q4

REPORT INFORMATION
  Report Type: Spontaneous
  Country: DE (occurrence: DE)
  Receive Date: 20171213
  Receipt Date: 20191204
  Transmission Date: 20200122
  Serious: Yes (Death, Hospitalization, Other)
  Sender: FDA-Public Use
  Company Number: DE-TEVA-817236GER

PATIENT
  Age: 14 Year
  Sex: Male
  Weight: 40 kg

DRUGS (7)
  1. PIPAMPERON-NEURAXPHARM 4MG/ML [Interacting]
     Active Substance: PIPAMPERONE HYDROCHLORIDE
     Indication: AGGRESSION
     Dosage: 12 MILLIGRAM/MILLILITERS DAILY; 0.75-0-0.75
     Route: 048
     Dates: start: 20170728
  2. OMEPRAZOL [Concomitant]
     Active Substance: OMEPRAZOLE
     Indication: GASTROOESOPHAGEAL REFLUX DISEASE
     Dosage: 20 MILLIGRAM DAILY; 20 MG 0-0-1 AS LONG-TERM MEDICATION
     Route: 065
  3. VITAMIN D [Concomitant]
     Active Substance: VITAMIN D NOS
  4. RISPERIDON-RATIOPHARM 1 MG/ML [Interacting]
     Active Substance: RISPERIDONE
     Indication: AUTISM SPECTRUM DISORDER
     Dosage: .75 ML DAILY;
     Route: 048
     Dates: start: 20160708, end: 20170717
  5. MOVICOL [Concomitant]
     Active Substance: POLYETHYLENE GLYCOL 3350\POTASSIUM CHLORIDE\SODIUM BICARBONATE\SODIUM CHLORIDE
     Dosage: 1 SACHET AS REQUIRED
  6. RISPERIDON-RATIOPHARM 1 MG/ML [Suspect]
     Active Substance: RISPERIDONE
     Indication: AGGRESSION
     Dosage: 0.25MG-0.25MG-0.5MG
     Route: 048
     Dates: start: 20160708
  7. RISPERIDON-RATIOPHARM 1 MG/ML [Interacting]
     Active Substance: RISPERIDONE
     Dosage: 1 ML DAILY;
     Route: 048
     Dates: start: 20170718

REACTIONS (22)
  - Drug interaction [Unknown]
  - Weight increased [Unknown]
  - Brain oedema [Fatal]
  - Increased appetite [Unknown]
  - Off label use [Unknown]
  - Sedation complication [Not Recovered/Not Resolved]
  - Arrhythmia [Unknown]
  - Restlessness [Unknown]
  - Parkinsonism [Unknown]
  - Sudden cardiac death [Fatal]
  - Hypotonia [Unknown]
  - Behaviour disorder [Unknown]
  - Dizziness [Unknown]
  - Growth accelerated [Unknown]
  - Areflexia [Fatal]
  - Scleral haemorrhage [Unknown]
  - Intentional product use issue [Unknown]
  - Haemoptysis [Unknown]
  - Oropharyngeal spasm [Unknown]
  - Infection susceptibility increased [Unknown]
  - Muscle spasms [Unknown]
  - Fatigue [Unknown]

NARRATIVE: CASE EVENT DATE: 2017
